FAERS Safety Report 16911851 (Version 2)
Quarter: 2019Q4

REPORT INFORMATION
  Report Type: Spontaneous
  Country: US (occurrence: US)
  Receive Date: 20191014
  Receipt Date: 20191211
  Transmission Date: 20200122
  Serious: No
  Sender: FDA-Public Use
  Company Number: US-SA-2019SA277094

PATIENT
  Age: 55 Year
  Sex: Male

DRUGS (1)
  1. KEVZARA [Suspect]
     Active Substance: SARILUMAB
     Dosage: 150 MG, OTHER
     Route: 058
     Dates: start: 201907, end: 201909

REACTIONS (1)
  - Drug ineffective [Unknown]
